FAERS Safety Report 5518105-0 (Version None)
Quarter: 2007Q4

REPORT INFORMATION
  Report Type: 
  Country: None (occurrence: None)
  Receive Date: 20071115
  Receipt Date: 20071109
  Transmission Date: 20080405
  Serious: Yes (Life-Threatening, Hospitalization)
  Sender: FDA-Public Use
  Company Number: DE-BAYER-200711000BVD

PATIENT
  Age: 59 Year
  Sex: Male
  Weight: 59 kg

DRUGS (10)
  1. SORAFENIB [Suspect]
     Indication: HYPOPHARYNGEAL CANCER
     Dosage: UNIT DOSE: 400 MG
     Route: 048
     Dates: start: 20070715
  2. GEMCITABINE [Suspect]
     Route: 042
     Dates: start: 20070731, end: 20070731
  3. GEMCITABINE [Suspect]
     Route: 042
     Dates: start: 20070717, end: 20070717
  4. GEMCITABINE [Suspect]
     Route: 042
     Dates: start: 20070710, end: 20070710
  5. GEMCITABINE [Suspect]
     Route: 042
     Dates: start: 20070821, end: 20070821
  6. GEMCITABINE [Suspect]
     Route: 042
     Dates: start: 20070807, end: 20070807
  7. CISPLATIN [Suspect]
     Route: 042
     Dates: start: 20070731, end: 20070731
  8. CISPLATIN [Suspect]
     Route: 042
     Dates: start: 20070821, end: 20070821
  9. CISPLATIN [Suspect]
     Route: 042
     Dates: start: 20070710, end: 20070710
  10. CLODRON [Concomitant]
     Indication: OSTEOLYSIS
     Route: 048
     Dates: start: 20070501

REACTIONS (3)
  - ANAEMIA [None]
  - GENERAL PHYSICAL HEALTH DETERIORATION [None]
  - LEUKOPENIA [None]
